FAERS Safety Report 4570779-7 (Version None)
Quarter: 2005Q1

REPORT INFORMATION
  Report Type: 
  Country: None (occurrence: None)
  Receive Date: 20050202
  Receipt Date: 20050122
  Transmission Date: 20050727
  Serious: Yes (Other)
  Sender: FDA-Public Use
  Company Number: 2005018835

PATIENT
  Age: 33 Year
  Sex: Female

DRUGS (1)
  1. DEPO-PROVERA [Suspect]
     Indication: CONTRACEPTION
     Dosage: 150 MG (150 MG, 1ST INJECTION, EVERY 3 MONTHS), INTRAMUSCULAR
     Route: 030
     Dates: start: 20040210, end: 20040210

REACTIONS (4)
  - CHEST PAIN [None]
  - DYSPNOEA [None]
  - HEPATIC MASS [None]
  - NEPHROLITHIASIS [None]
